FAERS Safety Report 24332974 (Version 1)
Quarter: 2024Q3

REPORT INFORMATION
  Report Type: Spontaneous
  Country: US (occurrence: None)
  Receive Date: 20240917
  Receipt Date: 20240917
  Transmission Date: 20241017
  Serious: Yes (Hospitalization)
  Sender: Public
  Company Number: None

PATIENT
  Sex: Female

DRUGS (2)
  1. PROCRIT [Suspect]
     Active Substance: ERYTHROPOIETIN
     Indication: Nephrogenic anaemia
     Dosage: FREQUENCY : WEEKLY;?
     Route: 058
     Dates: start: 202402
  2. IV Treatment [Concomitant]

REACTIONS (3)
  - Blood sodium decreased [None]
  - Blood magnesium decreased [None]
  - Electrolyte imbalance [None]
